FAERS Safety Report 12876400 (Version 1)
Quarter: 2016Q4

REPORT INFORMATION
  Report Type: Other
  Country: CA (occurrence: CA)
  Receive Date: 20161024
  Receipt Date: 20161024
  Transmission Date: 20170207
  Serious: Yes (Other)
  Sender: FDA-Public Use
  Company Number: CA-APOTEX-2016AP012977

PATIENT
  Age: 30 Year
  Sex: Female
  Weight: 54.42 kg

DRUGS (3)
  1. APO-CARBAMAZEPINE CR [Suspect]
     Active Substance: CARBAMAZEPINE
     Indication: EPILEPSY
     Dosage: 1300 MG, UNK
     Route: 065
  2. PAXIL [Concomitant]
     Active Substance: PAROXETINE HYDROCHLORIDE
     Indication: PRODUCT USED FOR UNKNOWN INDICATION
     Dosage: UNK
     Route: 065
  3. APO-CARBAMAZEPINE CR [Suspect]
     Active Substance: CARBAMAZEPINE
     Dosage: 275 MG, UNK
     Route: 065

REACTIONS (2)
  - Seizure [Unknown]
  - Product substitution issue [Unknown]
